FAERS Safety Report 5657913-2 (Version None)
Quarter: 2008Q1

REPORT INFORMATION
  Report Type: 
  Country: None (occurrence: None)
  Receive Date: 20080310
  Receipt Date: 20080303
  Transmission Date: 20080703
  Serious: Yes (Hospitalization)
  Sender: FDA-Public Use
  Company Number: PHEH2008US02393

PATIENT
  Sex: Female

DRUGS (1)
  1. TEKTURNA HCT [Suspect]
     Dosage: UNK, QD

REACTIONS (2)
  - BLOOD POTASSIUM DECREASED [None]
  - WEIGHT DECREASED [None]
